FAERS Safety Report 5732550-X (Version None)
Quarter: 2008Q2

REPORT INFORMATION
  Report Type: 
  Country: None (occurrence: None)
  Receive Date: 20080507
  Receipt Date: 20080423
  Transmission Date: 20081010
  Serious: Yes (Death)
  Sender: FDA-Public Use
  Company Number: JPKYO-S-20080020

PATIENT
  Age: 57 Year
  Sex: Female

DRUGS (8)
  1. NAVELBINE [Suspect]
     Indication: BREAST CANCER RECURRENT
     Dosage: 25 MG/M2 QD IV
     Route: 042
     Dates: start: 20070717, end: 20070724
  2. TAXOTERE [Suspect]
     Indication: BREAST CANCER RECURRENT
     Dosage: 25 MG/M2 QD IV
     Route: 042
     Dates: start: 20061212, end: 20070626
  3. ZOMETA [Concomitant]
  4. LANIRAPID [Concomitant]
  5. ADALAT CHRONO [Concomitant]
  6. VOLTAREN [Concomitant]
  7. LASIX               . MFR: NOT SPECIFIED [Concomitant]
  8. PREDONINE [Concomitant]

REACTIONS (7)
  - ABDOMINAL DISTENSION [None]
  - DEPRESSED LEVEL OF CONSCIOUSNESS [None]
  - HEPATIC CIRRHOSIS [None]
  - HEPATIC FAILURE [None]
  - HEPATIC FUNCTION ABNORMAL [None]
  - HYPERKALAEMIA [None]
  - RENAL FAILURE [None]
